FAERS Safety Report 18893999 (Version 1)
Quarter: 2021Q1

REPORT INFORMATION
  Report Type: Other
  Country: CA (occurrence: CA)
  Receive Date: 20210215
  Receipt Date: 20210215
  Transmission Date: 20210420
  Serious: Yes (Other)
  Sender: FDA-Public Use
  Company Number: CA-ROCHE-2766572

PATIENT

DRUGS (5)
  1. TACROLIMUS. [Suspect]
     Active Substance: TACROLIMUS
     Indication: NEPHROTIC SYNDROME
     Route: 065
  2. CYCLOPHOSPHAMIDE. [Suspect]
     Active Substance: CYCLOPHOSPHAMIDE
     Indication: NEPHROTIC SYNDROME
     Route: 065
  3. MYCOPHENOLATE MOFETIL. [Suspect]
     Active Substance: MYCOPHENOLATE MOFETIL
     Indication: NEPHROTIC SYNDROME
     Route: 065
  4. RITUXIMAB. [Suspect]
     Active Substance: RITUXIMAB
     Indication: NEPHROTIC SYNDROME
     Route: 042
  5. LEVAMISOLE [Suspect]
     Active Substance: LEVAMISOLE
     Indication: NEPHROTIC SYNDROME
     Route: 065

REACTIONS (7)
  - Pneumocystis jirovecii pneumonia [Unknown]
  - Neutropenia [Unknown]
  - Colitis [Unknown]
  - Agranulocytosis [Unknown]
  - Pancreatitis acute [Unknown]
  - Proteinuria [Unknown]
  - Anaphylactic reaction [Unknown]
